FAERS Safety Report 6266780-8 (Version None)
Quarter: 2009Q3

REPORT INFORMATION
  Report Type: 
  Country: None (occurrence: None)
  Receive Date: 20090709
  Receipt Date: 20090709
  Transmission Date: 20100115
  Serious: Yes (Hospitalization, Other)
  Sender: FDA-Public Use
  Company Number: None

PATIENT
  Sex: Female
  Weight: 77.1115 kg

DRUGS (1)
  1. VIVELLE-DOT [Suspect]
     Indication: MENOPAUSE
     Dosage: 0.1 2X'S WEEKLY
     Dates: start: 20051101, end: 20081101

REACTIONS (11)
  - ACROCHORDON [None]
  - BACK PAIN [None]
  - BLOOD PRESSURE INCREASED [None]
  - CONDITION AGGRAVATED [None]
  - DECREASED APPETITE [None]
  - HYPERAESTHESIA [None]
  - LETHARGY [None]
  - MELANOCYTIC NAEVUS [None]
  - POLLAKIURIA [None]
  - RASH [None]
  - WEIGHT DECREASED [None]
